FAERS Safety Report 24274040 (Version 2)
Quarter: 2024Q3

REPORT INFORMATION
  Report Type: Spontaneous
  Country: FI (occurrence: FI)
  Receive Date: 20240902
  Receipt Date: 20240923
  Transmission Date: 20241017
  Serious: Yes (Other)
  Sender: ABBVIE
  Company Number: FI-ABBVIE-5899346

PATIENT
  Sex: Male

DRUGS (1)
  1. SKYRIZI [Suspect]
     Active Substance: RISANKIZUMAB-RZAA
     Indication: Inflammatory bowel disease
     Dosage: S.C. DOSING FOR IBD PATIENTS (TYPICAL DOSE)
     Route: 058

REACTIONS (6)
  - Presyncope [Recovered/Resolved]
  - Malaise [Unknown]
  - Loss of consciousness [Recovered/Resolved]
  - Urinary incontinence [Unknown]
  - Syncope [Recovered/Resolved]
  - Syncope [Unknown]
